FAERS Safety Report 8699647 (Version 2)
Quarter: 2013Q3

REPORT INFORMATION
  Report Type: Report from Study
  Country: MX (occurrence: MX)
  Receive Date: 20120802
  Receipt Date: 20130819
  Transmission Date: 20140515
  Serious: Yes (Other)
  Sender: FDA-Public Use
  Company Number: PHHY2012MX066531

PATIENT
  Age: 63 Year
  Sex: Female

DRUGS (3)
  1. EXFORGE [Suspect]
     Indication: HYPERTENSION
     Dosage: 1 DF (160MG VALS/ 5MG AMLO), DAILY
     Dates: start: 201205
  2. ASPIRINA [Concomitant]
     Dosage: 1 DF, DAILY
  3. LIPITOR [Concomitant]
     Dosage: 1 DF, DAILY

REACTIONS (1)
  - Hernia [Recovered/Resolved]
